FAERS Safety Report 11416436 (Version 6)
Quarter: 2016Q1

REPORT INFORMATION
  Report Type: Report from Study
  Country: KR (occurrence: KR)
  Receive Date: 20150825
  Receipt Date: 20160308
  Transmission Date: 20160525
  Serious: Yes (Disabling, Other)
  Sender: FDA-Public Use
  Company Number: KR-BAYER-2015-378838

PATIENT
  Age: 55 Year
  Sex: Female

DRUGS (5)
  1. NEXAVAR [Suspect]
     Active Substance: SORAFENIB
     Indication: THYROID CANCER
     Dosage: DAILY DOSE 600MG (400 MG IN THE MORNING AND 200 MG IN THE EVENING)
     Route: 048
     Dates: start: 20150704, end: 20150813
  2. NEXAVAR [Suspect]
     Active Substance: SORAFENIB
     Indication: THYROID CANCER
     Dosage: 200 MG, BID
     Route: 048
     Dates: start: 20151002, end: 20160120
  3. AMFETAMINE [Concomitant]
     Active Substance: AMPHETAMINE
  4. NEXAVAR [Suspect]
     Active Substance: SORAFENIB
     Indication: THYROID CANCER
     Dosage: 200 MG, QD
     Route: 048
     Dates: start: 20150814, end: 20151001
  5. NEXAVAR [Suspect]
     Active Substance: SORAFENIB
     Indication: THYROID CANCER
     Dosage: 400 MG, BID
     Route: 048
     Dates: start: 20150626, end: 20150703

REACTIONS (24)
  - Blood pressure increased [Recovered/Resolved]
  - Gait disturbance [None]
  - Pain [Not Recovered/Not Resolved]
  - Muscle spasms [Not Recovered/Not Resolved]
  - Metastases to liver [None]
  - Oral herpes [Recovering/Resolving]
  - Feeding disorder [Recovering/Resolving]
  - Yellow skin [None]
  - Contusion [Recovered/Resolved]
  - Pain [None]
  - Alopecia [Not Recovered/Not Resolved]
  - Ligament sprain [Not Recovered/Not Resolved]
  - Skin exfoliation [Not Recovered/Not Resolved]
  - Erythema [Not Recovered/Not Resolved]
  - Blister [None]
  - Ligament sprain [Recovered/Resolved]
  - General physical health deterioration [None]
  - Constipation [None]
  - Pain in extremity [None]
  - Thyroid cancer [None]
  - Activities of daily living impaired [None]
  - Diarrhoea [Recovered/Resolved with Sequelae]
  - Peripheral swelling [Not Recovered/Not Resolved]
  - Calcium deficiency [None]

NARRATIVE: CASE EVENT DATE: 2015
